FAERS Safety Report 24777063 (Version 1)
Quarter: 2024Q4

REPORT INFORMATION
  Report Type: Spontaneous
  Country: MX (occurrence: MX)
  Receive Date: 20241226
  Receipt Date: 20241226
  Transmission Date: 20250114
  Serious: Yes (Life-Threatening, Hospitalization, Other)
  Sender: RANBAXY
  Company Number: MX-SUN PHARMACEUTICAL INDUSTRIES LTD-2024R1-485618

PATIENT
  Age: 25 Year
  Sex: Female

DRUGS (1)
  1. HYDRALAZINE [Suspect]
     Active Substance: HYDRALAZINE HYDROCHLORIDE
     Indication: Hypertension
     Dosage: 20 MILLIGRAM, UNK
     Route: 042

REACTIONS (3)
  - Drug ineffective [Unknown]
  - Exposure during pregnancy [Unknown]
  - Live birth [Unknown]
